APPROVED DRUG PRODUCT: POLARAMINE
Active Ingredient: DEXCHLORPHENIRAMINE MALEATE
Strength: 2MG
Dosage Form/Route: TABLET;ORAL
Application: A086835 | Product #001
Applicant: SCHERING CORP SUB SCHERING PLOUGH CORP
Approved: Approved Prior to Jan 1, 1982 | RLD: Yes | RS: No | Type: DISCN